FAERS Safety Report 14819317 (Version 1)
Quarter: 2018Q2

REPORT INFORMATION
  Report Type: Spontaneous
  Country: US (occurrence: US)
  Receive Date: 20180427
  Receipt Date: 20180427
  Transmission Date: 20180711
  Serious: Yes (Death)
  Sender: FDA-Public Use
  Company Number: US-BAYER-2018-077137

PATIENT
  Sex: Male

DRUGS (1)
  1. BAYER ASPIRIN [Suspect]
     Active Substance: ASPIRIN
     Dosage: 1 DF, QD
     Route: 065

REACTIONS (2)
  - Incorrect drug administration duration [Unknown]
  - Death [Fatal]

NARRATIVE: CASE EVENT DATE: 1998
